FAERS Safety Report 5009957-1 (Version None)
Quarter: 2006Q2

REPORT INFORMATION
  Report Type: 
  Country: None (occurrence: None)
  Receive Date: 20060522
  Receipt Date: 20060505
  Transmission Date: 20061013
  Serious: Yes (Other)
  Sender: FDA-Public Use
  Company Number: 224834

PATIENT
  Age: 50 Year
  Sex: Male
  Weight: 70 kg

DRUGS (7)
  1. XOLAIR [Suspect]
     Indication: ASTHMA
     Dosage: 300 MG
     Dates: start: 20051221
  2. KETEK [Concomitant]
  3. SOLUPRED (PREDNISOLONE) [Concomitant]
  4. FORADIL [Concomitant]
  5. THEOPHYLLINE [Concomitant]
  6. CETIRIZINE HCL [Concomitant]
  7. BUDESONIDE [Concomitant]

REACTIONS (1)
  - GRAND MAL CONVULSION [None]
